FAERS Safety Report 6508615-1 (Version None)
Quarter: 2009Q4

REPORT INFORMATION
  Report Type: 
  Country: None (occurrence: None)
  Receive Date: 20091221
  Receipt Date: 20091210
  Transmission Date: 20100525
  Serious: Yes (Hospitalization)
  Sender: FDA-Public Use
  Company Number: US-ASTRAZENECA-2009SE31123

PATIENT
  Age: 62 Year
  Sex: Female
  Weight: 92.1 kg

DRUGS (3)
  1. NEXIUM [Suspect]
     Route: 048
  2. BENICAR [Concomitant]
  3. OTC ARTHRITIS MEDICATION [Concomitant]

REACTIONS (3)
  - DRUG DOSE OMISSION [None]
  - HERPES ZOSTER [None]
  - PNEUMONIA [None]
